FAERS Safety Report 17972154 (Version 1)
Quarter: 2020Q3

REPORT INFORMATION
  Report Type: Spontaneous
  Country: FR (occurrence: FR)
  Receive Date: 20200702
  Receipt Date: 20200702
  Transmission Date: 20201103
  Serious: Yes (Life-Threatening)
  Sender: FDA-Public Use
  Company Number: FR-ORION CORPORATION ORION PHARMA-20_00009687

PATIENT
  Age: 84 Year
  Sex: Female
  Weight: 49.1 kg

DRUGS (6)
  1. FUROSEMIDE. [Concomitant]
     Active Substance: FUROSEMIDE
     Route: 065
  2. BISOPROLOL (ACID FUMARATE) [Concomitant]
     Active Substance: BISOPROLOL FUMARATE
     Route: 065
  3. PANTOPRAZOLE [Concomitant]
     Active Substance: PANTOPRAZOLE
     Route: 065
  4. METHOTREXATE (TRADE NAME UNKNOWN) [Suspect]
     Active Substance: METHOTREXATE
     Indication: RHEUMATOID ARTHRITIS
     Route: 048
     Dates: end: 20200524
  5. POTASSIUM [Concomitant]
     Active Substance: POTASSIUM
     Route: 065
  6. XARELTO [Concomitant]
     Active Substance: RIVAROXABAN
     Route: 065

REACTIONS (2)
  - Cardiac failure [Recovering/Resolving]
  - Pancytopenia [Recovering/Resolving]

NARRATIVE: CASE EVENT DATE: 201905
